FAERS Safety Report 4847508-2 (Version None)
Quarter: 2005Q4

REPORT INFORMATION
  Report Type: 
  Country: None (occurrence: None)
  Receive Date: 20051207
  Receipt Date: 20040831
  Transmission Date: 20060501
  Serious: Yes (Hospitalization, Other)
  Sender: FDA-Public Use
  Company Number: FRWYE008931AUG04

PATIENT
  Age: 69 Year
  Sex: Male
  Weight: 69 kg

DRUGS (4)
  1. ENBREL [Suspect]
     Indication: RHEUMATOID ARTHRITIS
     Route: 058
     Dates: start: 20040120, end: 20040629
  2. ARAVA [Suspect]
     Indication: RHEUMATOID ARTHRITIS
     Route: 048
     Dates: start: 20010926, end: 20040226
  3. VASTAREL [Concomitant]
     Dosage: UNKNOWN
  4. LANSOPRAZOLE [Concomitant]
     Dosage: UNKNOWN

REACTIONS (4)
  - ANTINUCLEAR ANTIBODY POSITIVE [None]
  - DIFFUSE LARGE B-CELL LYMPHOMA [None]
  - DIFFUSE LARGE B-CELL LYMPHOMA STAGE II [None]
  - NEUTROPHIL COUNT INCREASED [None]
